APPROVED DRUG PRODUCT: TRIAMCINOLONE ACETONIDE
Active Ingredient: TRIAMCINOLONE ACETONIDE
Strength: 0.1% **Federal Register determination that product was not discontinued or withdrawn for safety or effectiveness reasons**
Dosage Form/Route: OINTMENT;TOPICAL
Application: N011600 | Product #001
Applicant: EXTROVIS AG
Approved: Approved Prior to Jan 1, 1982 | RLD: Yes | RS: No | Type: DISCN